FAERS Safety Report 25390824 (Version 1)
Quarter: 2025Q2

REPORT INFORMATION
  Report Type: Spontaneous
  Country: GB (occurrence: GB)
  Receive Date: 20250603
  Receipt Date: 20250603
  Transmission Date: 20250716
  Serious: Yes (Other)
  Sender: CIPLA
  Company Number: GB-MHRA-TPP48787435C19941386YC1744903029392

PATIENT

DRUGS (15)
  1. CETIRIZINE [Suspect]
     Active Substance: CETIRIZINE HYDROCHLORIDE
     Indication: Ill-defined disorder
     Dosage: 5 MILLILITER, BID (12 HOURS) (5MLS TWICE DAILY) (SUGAR FREE)
     Route: 065
     Dates: start: 20250403
  2. HYDROCORTISONE [Concomitant]
     Active Substance: HYDROCORTISONE
     Indication: Ill-defined disorder
     Dosage: UNK, APPLY TWICE DAILY, BID
     Route: 065
     Dates: start: 20250225, end: 20250304
  3. MOMETASONE [Concomitant]
     Active Substance: MOMETASONE
     Indication: Ill-defined disorder
     Dosage: UNK, QD ONE SPRAY TO EACH NOSTRIL ONCE A DAY
     Route: 065
     Dates: start: 20250402
  4. PREDNISOLONE [Concomitant]
     Active Substance: PREDNISOLONE
     Indication: Ill-defined disorder
     Route: 065
     Dates: start: 20250225, end: 20250226
  5. CLOBETASONE BUTYRATE [Concomitant]
     Active Substance: CLOBETASONE BUTYRATE
     Indication: Ill-defined disorder
     Dosage: APPLY TWICE DAILY FOR 7 DAYS, BID
     Route: 065
     Dates: start: 20250314, end: 20250321
  6. CHLORPHENIRAMINE MALEATE [Concomitant]
     Active Substance: CHLORPHENIRAMINE MALEATE
     Indication: Ill-defined disorder
     Dosage: 2 MILLIGRAM, QD (2 MG AT NIGHT)
     Route: 065
     Dates: start: 20250414
  7. LOPERAMIDE [Concomitant]
     Active Substance: LOPERAMIDE
     Indication: Ill-defined disorder
     Route: 065
     Dates: start: 20250414
  8. LORATADINE [Concomitant]
     Active Substance: LORATADINE
     Indication: Ill-defined disorder
     Dosage: 5 MILLILITER, QD (ONE 5ML SPOONFUL DAILY)
     Route: 065
     Dates: start: 20250414
  9. PROTOPIC [Concomitant]
     Active Substance: TACROLIMUS
     Indication: Ill-defined disorder
     Route: 065
     Dates: start: 20231208
  10. FLURANDRENOLIDE [Concomitant]
     Active Substance: FLURANDRENOLIDE
     Indication: Ill-defined disorder
     Route: 065
     Dates: start: 20231208
  11. DERMOL [CLOBETASOL PROPIONATE] [Concomitant]
     Indication: Ill-defined disorder
     Route: 065
     Dates: start: 20231208
  12. EUMOVATE [Concomitant]
     Active Substance: CLOBETASONE BUTYRATE
     Indication: Ill-defined disorder
     Route: 065
     Dates: start: 20231208
  13. ZEROAQS [Concomitant]
     Indication: Ill-defined disorder
     Route: 065
     Dates: start: 20231208
  14. COMBISAL [Concomitant]
     Indication: Ill-defined disorder
     Dosage: 2 DOSAGE FORM, BID (INHALE 2 DOSES TWICE DAILY USING A SPACER DEVICE)
     Dates: start: 20240715
  15. MONTELUKAST [Concomitant]
     Active Substance: MONTELUKAST
     Indication: Ill-defined disorder
     Dosage: 1 DOSAGE FORM, QD TAKE ONE AT NIGHT
     Route: 065
     Dates: start: 20240813

REACTIONS (5)
  - Swelling face [Unknown]
  - Dyspnoea [Unknown]
  - Urticaria [Recovered/Resolved]
  - Hypersensitivity [Unknown]
  - Diarrhoea [Unknown]

NARRATIVE: CASE EVENT DATE: 20250412
